FAERS Safety Report 9838176 (Version 2)
Quarter: 2014Q1

REPORT INFORMATION
  Report Type: Report from Study
  Country: US (occurrence: US)
  Receive Date: 20140123
  Receipt Date: 20140126
  Transmission Date: 20141002
  Serious: Yes (Life-Threatening, Hospitalization)
  Sender: FDA-Public Use
  Company Number: US-AMGEN-USACT2014003475

PATIENT
  Age: 47 Year
  Sex: Female
  Weight: 123.6 kg

DRUGS (2)
  1. PANITUMUMAB [Suspect]
     Indication: LUNG ADENOCARCINOMA
     Dosage: 1710 MG, UNK
     Route: 065
     Dates: end: 20130828
  2. CARBOPLATIN [Concomitant]
     Indication: LUNG ADENOCARCINOMA
     Dosage: UNK UNK, Q3WK

REACTIONS (3)
  - Respiratory failure [Recovering/Resolving]
  - Anaphylactic reaction [Recovering/Resolving]
  - Cardiac arrest [Recovering/Resolving]
